FAERS Safety Report 10951946 (Version 1)
Quarter: 2015Q1

REPORT INFORMATION
  Report Type: Spontaneous
  Country: US (occurrence: US)
  Receive Date: 20150325
  Receipt Date: 20150325
  Transmission Date: 20150721
  Serious: Yes (Other)
  Sender: FDA-Public Use
  Company Number: US-HORIZON-PRE-0046-2015

PATIENT
  Sex: Female

DRUGS (2)
  1. RAYOS [Suspect]
     Active Substance: PREDNISONE
     Indication: ADDISON^S DISEASE
     Dosage: TAKEN IN COMBINATION WITH RAYOS 2 MG
     Dates: start: 201410
  2. RAYOS [Suspect]
     Active Substance: PREDNISONE
     Indication: ADDISON^S DISEASE
     Dosage: TAKEN IN COMBINATION WITH RAYOS 5 MG
     Dates: start: 201410

REACTIONS (2)
  - Nausea [Recovering/Resolving]
  - Abnormal loss of weight [Recovering/Resolving]

NARRATIVE: CASE EVENT DATE: 20150317
